FAERS Safety Report 6190727-6 (Version None)
Quarter: 2009Q2

REPORT INFORMATION
  Report Type: 
  Country: None (occurrence: None)
  Receive Date: 20090514
  Receipt Date: 20090404
  Transmission Date: 20091009
  Serious: Yes (Other)
  Sender: FDA-Public Use
  Company Number: BR-PFIZER INC-2009154761

PATIENT
  Age: 27 Year

DRUGS (4)
  1. GEODON [Suspect]
     Indication: BIPOLAR DISORDER
     Dosage: EVERY DAY
     Route: 048
     Dates: start: 20080930
  2. ZYPREXA [Concomitant]
     Dosage: UNK
  3. TOPIRAMATE [Concomitant]
     Dosage: 100 MG, 1X/DAY
     Dates: start: 20081201
  4. DEPAKOTE [Concomitant]
     Dosage: UNK
     Dates: start: 20070101

REACTIONS (4)
  - DIZZINESS [None]
  - EXTRAPYRAMIDAL DISORDER [None]
  - HALLUCINATION, OLFACTORY [None]
  - SOMNOLENCE [None]
